FAERS Safety Report 21972412 (Version 1)
Quarter: 2023Q1

REPORT INFORMATION
  Report Type: Spontaneous
  Country: CA (occurrence: CA)
  Receive Date: 20230209
  Receipt Date: 20230209
  Transmission Date: 20230417
  Serious: Yes (Hospitalization)
  Sender: FDA-Public Use
  Company Number: CA-002147023-NVSC2023CA023581

PATIENT
  Age: 11 Year
  Sex: Female

DRUGS (9)
  1. ERELZI [Interacting]
     Active Substance: ETANERCEPT-SZZS
     Indication: Mucosal inflammation
     Dosage: 0.6 MG/KG
     Route: 058
  2. ERELZI [Interacting]
     Active Substance: ETANERCEPT-SZZS
     Indication: Mucocutaneous rash
     Dosage: 0.8 MG/KG
     Route: 058
  3. CLOBETASOL PROPIONATE [Concomitant]
     Active Substance: CLOBETASOL PROPIONATE
     Indication: Mucocutaneous rash
     Dosage: UNK
     Route: 065
  4. DEXAMETHASONE [Concomitant]
     Active Substance: DEXAMETHASONE
     Indication: Mucocutaneous rash
     Dosage: UNK
     Route: 065
  5. DEXAMETHASONE [Concomitant]
     Active Substance: DEXAMETHASONE
     Indication: Mucosal inflammation
  6. LIDOCAINE [Concomitant]
     Active Substance: LIDOCAINE
     Indication: Mucocutaneous rash
     Dosage: UNK
     Route: 061
  7. PETROLATUM [Concomitant]
     Active Substance: PETROLATUM
     Indication: Mucocutaneous rash
     Dosage: UNK
     Route: 065
  8. SUCRALFATE [Concomitant]
     Active Substance: SUCRALFATE
     Indication: Stomatitis
     Dosage: UNK
     Route: 065
  9. TRANEXAMIC ACID [Concomitant]
     Active Substance: TRANEXAMIC ACID
     Indication: Stomatitis
     Dosage: UNK
     Route: 065

REACTIONS (3)
  - Mucocutaneous rash [Unknown]
  - Drug interaction [Unknown]
  - Off label use [Unknown]
